FAERS Safety Report 12104036 (Version 1)
Quarter: 2016Q1

REPORT INFORMATION
  Report Type: Spontaneous
  Country: ES (occurrence: ES)
  Receive Date: 20160223
  Receipt Date: 20160223
  Transmission Date: 20160526
  Serious: Yes (Death, Life-Threatening)
  Sender: FDA-Public Use
  Company Number: ES-AUROBINDO-AUR-APL-2016-02065

PATIENT
  Age: 60 Year
  Sex: Female

DRUGS (1)
  1. RIBAVIRIN 200 MG AUROBINDO CAPSULES HARD EFG [Suspect]
     Active Substance: RIBAVIRIN
     Indication: HEPATITIS C VIRUS TEST POSITIVE
     Dosage: 400 MG, TWO TIMES A DAY
     Route: 048
     Dates: start: 20150522, end: 201510

REACTIONS (1)
  - Gastrointestinal haemorrhage [Fatal]

NARRATIVE: CASE EVENT DATE: 20150929
